FAERS Safety Report 8289083-9 (Version None)
Quarter: 2012Q2

REPORT INFORMATION
  Report Type: 
  Country: None (occurrence: None)
  Receive Date: 20120412
  Receipt Date: 20120403
  Transmission Date: 20120825
  Serious: Yes (Other)
  Sender: FDA-Public Use
  Company Number: DSA_03590_2012

PATIENT
  Sex: Female

DRUGS (4)
  1. VANIQA [Suspect]
     Indication: PRODUCT USED FOR UNKNOWN INDICATION
     Dosage: (DF TOPICAL)
     Route: 061
     Dates: start: 20120101, end: 20120220
  2. SYNTHROID [Concomitant]
  3. LISINOPRIL AND HYDROCHLOROTHIAZIDE [Concomitant]
  4. COUMADIN [Concomitant]

REACTIONS (6)
  - EYE SWELLING [None]
  - ERYTHEMA [None]
  - SKIN SENSITISATION [None]
  - PAIN IN JAW [None]
  - NASAL OEDEMA [None]
  - RHINALGIA [None]
